FAERS Safety Report 8426569-8 (Version None)
Quarter: 2012Q2

REPORT INFORMATION
  Report Type: 
  Country: None (occurrence: None)
  Receive Date: 20120604
  Receipt Date: 20120523
  Transmission Date: 20120825
  Serious: Yes (Other)
  Sender: FDA-Public Use
  Company Number: 2012SP027866

PATIENT
  Age: 67 Year
  Sex: Female
  Weight: 65 kg

DRUGS (8)
  1. GASMOTIN [Concomitant]
  2. AMOBAN [Concomitant]
  3. PEG-INTRON [Suspect]
     Indication: HEPATITIS C
     Dosage: 1.5 MCG/KG;QW;SC
     Route: 058
     Dates: start: 20120419
  4. TELAVIC (ANTIVIRALS NOS) [Suspect]
     Indication: HEPATITIS C
     Dosage: 2250 MG;QD;PO
     Route: 048
     Dates: start: 20120419, end: 20120514
  5. ZOLPIDEM [Concomitant]
  6. REBETOL [Suspect]
     Indication: HEPATITIS C
     Dosage: 800 MG;QD;PO 600 MG;QD;PO
     Route: 048
     Dates: start: 20120430, end: 20120514
  7. REBETOL [Suspect]
     Indication: HEPATITIS C
     Dosage: 800 MG;QD;PO 600 MG;QD;PO
     Route: 048
     Dates: start: 20120419, end: 20120429
  8. MAGMITT [Concomitant]

REACTIONS (9)
  - GENERALISED ERYTHEMA [None]
  - ANAEMIA [None]
  - ERYTHEMA [None]
  - PRURITUS [None]
  - RASH [None]
  - BLOOD URIC ACID INCREASED [None]
  - BLISTER [None]
  - OEDEMA [None]
  - INSOMNIA [None]
